FAERS Safety Report 26131425 (Version 1)
Quarter: 2025Q4

REPORT INFORMATION
  Report Type: Spontaneous
  Country: US (occurrence: US)
  Receive Date: 20251208
  Receipt Date: 20251208
  Transmission Date: 20260118
  Serious: Yes (Life-Threatening, Hospitalization)
  Sender: MYLAN
  Company Number: US-MYLANLABS-2025M1102794

PATIENT
  Age: 63 Year
  Sex: Female

DRUGS (32)
  1. OCTREOTIDE [Suspect]
     Active Substance: OCTREOTIDE
     Indication: Hypoglycaemia
     Dosage: 20 MILLIGRAM, MONTHLY, 20MG LAR
  2. OCTREOTIDE [Suspect]
     Active Substance: OCTREOTIDE
     Dosage: 20 MILLIGRAM, MONTHLY, 20MG LAR
  3. OCTREOTIDE [Suspect]
     Active Substance: OCTREOTIDE
     Dosage: 20 MILLIGRAM, MONTHLY, 20MG LAR
     Route: 065
  4. OCTREOTIDE [Suspect]
     Active Substance: OCTREOTIDE
     Dosage: 20 MILLIGRAM, MONTHLY, 20MG LAR
     Route: 065
  5. OCTREOTIDE [Suspect]
     Active Substance: OCTREOTIDE
     Dosage: 30 MILLIGRAM, MONTHLY, DOSE INCREASED 30MG LAR
  6. OCTREOTIDE [Suspect]
     Active Substance: OCTREOTIDE
     Dosage: 30 MILLIGRAM, MONTHLY, DOSE INCREASED 30MG LAR
  7. OCTREOTIDE [Suspect]
     Active Substance: OCTREOTIDE
     Dosage: 30 MILLIGRAM, MONTHLY, DOSE INCREASED 30MG LAR
     Route: 065
  8. OCTREOTIDE [Suspect]
     Active Substance: OCTREOTIDE
     Dosage: 30 MILLIGRAM, MONTHLY, DOSE INCREASED 30MG LAR
     Route: 065
  9. DIAZOXIDE [Suspect]
     Active Substance: DIAZOXIDE
     Indication: Hypoglycaemia
     Dosage: 3 MILLIGRAM/KILOGRAM, QD
  10. DIAZOXIDE [Suspect]
     Active Substance: DIAZOXIDE
     Dosage: 3 MILLIGRAM/KILOGRAM, QD
  11. DIAZOXIDE [Suspect]
     Active Substance: DIAZOXIDE
     Dosage: 3 MILLIGRAM/KILOGRAM, QD
     Route: 065
  12. DIAZOXIDE [Suspect]
     Active Substance: DIAZOXIDE
     Dosage: 3 MILLIGRAM/KILOGRAM, QD
     Route: 065
  13. DIAZOXIDE [Suspect]
     Active Substance: DIAZOXIDE
     Dosage: 100 MILLIGRAM, Q8H, DOSE INCREASED
  14. DIAZOXIDE [Suspect]
     Active Substance: DIAZOXIDE
     Dosage: 100 MILLIGRAM, Q8H, DOSE INCREASED
  15. DIAZOXIDE [Suspect]
     Active Substance: DIAZOXIDE
     Dosage: 100 MILLIGRAM, Q8H, DOSE INCREASED
     Route: 065
  16. DIAZOXIDE [Suspect]
     Active Substance: DIAZOXIDE
     Dosage: 100 MILLIGRAM, Q8H, DOSE INCREASED
     Route: 065
  17. DIAZOXIDE [Suspect]
     Active Substance: DIAZOXIDE
     Dosage: 8 MILLIGRAM/KILOGRAM, QD, TITRATED TO
  18. DIAZOXIDE [Suspect]
     Active Substance: DIAZOXIDE
     Dosage: 8 MILLIGRAM/KILOGRAM, QD, TITRATED TO
     Route: 065
  19. DIAZOXIDE [Suspect]
     Active Substance: DIAZOXIDE
     Dosage: 8 MILLIGRAM/KILOGRAM, QD, TITRATED TO
  20. DIAZOXIDE [Suspect]
     Active Substance: DIAZOXIDE
     Dosage: 8 MILLIGRAM/KILOGRAM, QD, TITRATED TO
     Route: 065
  21. DEXTROSE [Suspect]
     Active Substance: DEXTROSE MONOHYDRATE
     Indication: Hypoglycaemia
     Dosage: UNK
  22. DEXTROSE [Suspect]
     Active Substance: DEXTROSE MONOHYDRATE
     Dosage: UNK
     Route: 042
  23. DEXTROSE [Suspect]
     Active Substance: DEXTROSE MONOHYDRATE
     Dosage: UNK
     Route: 042
  24. DEXTROSE [Suspect]
     Active Substance: DEXTROSE MONOHYDRATE
     Dosage: UNK
  25. DEXTROSE [Suspect]
     Active Substance: DEXTROSE MONOHYDRATE
     Indication: Hypoglycaemia
     Dosage: UNK
  26. DEXTROSE [Suspect]
     Active Substance: DEXTROSE MONOHYDRATE
     Dosage: UNK
     Route: 042
  27. DEXTROSE [Suspect]
     Active Substance: DEXTROSE MONOHYDRATE
     Dosage: UNK
     Route: 042
  28. DEXTROSE [Suspect]
     Active Substance: DEXTROSE MONOHYDRATE
     Dosage: UNK
  29. WATER [Concomitant]
     Active Substance: WATER
     Indication: Vehicle solution use
     Dosage: UNK
  30. WATER [Concomitant]
     Active Substance: WATER
     Dosage: UNK
     Route: 042
  31. WATER [Concomitant]
     Active Substance: WATER
     Dosage: UNK
     Route: 042
  32. WATER [Concomitant]
     Active Substance: WATER
     Dosage: UNK

REACTIONS (3)
  - Respiratory distress [Unknown]
  - Drug ineffective for unapproved indication [Unknown]
  - Product prescribing issue [Unknown]
